FAERS Safety Report 7602931-8 (Version None)
Quarter: 2011Q3

REPORT INFORMATION
  Report Type: 
  Country: None (occurrence: None)
  Receive Date: 20110712
  Receipt Date: 20110707
  Transmission Date: 20111222
  Serious: Yes (Hospitalization, Other)
  Sender: FDA-Public Use
  Company Number: DE-SANOFI-AVENTIS-2011SA036359

PATIENT
  Age: 55 Year
  Sex: Female

DRUGS (11)
  1. ETANERCEPT [Suspect]
     Indication: RHEUMATOID ARTHRITIS
     Route: 065
     Dates: start: 20091201, end: 20091201
  2. CALCIUM CARBONATE W/CHOLECALCIFEROL/SODIUM [Concomitant]
     Route: 065
  3. PALLADONE [Concomitant]
     Dosage: 12 MG IN THE MORNING, 8 MG IN THE NOON, 8 MG IN THE EVENING
     Route: 065
  4. LEFLUNOMIDE [Suspect]
     Indication: RHEUMATOID ARTHRITIS
     Dosage: 20 MG
     Route: 048
     Dates: start: 20070701
  5. ETANERCEPT [Suspect]
     Route: 065
     Dates: end: 20110101
  6. ETANERCEPT [Suspect]
     Route: 065
     Dates: start: 20100601
  7. METHOTREXATE [Concomitant]
     Route: 065
     Dates: start: 20060101, end: 20091208
  8. TOCILIZUMAB [Suspect]
     Route: 065
     Dates: start: 20110501
  9. HYDROXYCHLOROQUINE SULFATE [Concomitant]
     Route: 065
     Dates: start: 20100301, end: 20100601
  10. PREDNISOLONE [Concomitant]
     Route: 065
  11. CHLOROQUINE [Concomitant]
     Route: 065
     Dates: start: 20100301, end: 20100601

REACTIONS (3)
  - DYSPNOEA EXERTIONAL [None]
  - ANGINA PECTORIS [None]
  - INTERVERTEBRAL DISC PROTRUSION [None]
